FAERS Safety Report 19530009 (Version 1)
Quarter: 2021Q3

REPORT INFORMATION
  Report Type: Spontaneous
  Country: CN (occurrence: CN)
  Receive Date: 20210713
  Receipt Date: 20210713
  Transmission Date: 20211014
  Serious: Yes (Other)
  Sender: FDA-Public Use
  Company Number: CN-ASTELLAS-2021US025782

PATIENT
  Sex: Male

DRUGS (1)
  1. XTANDI [Suspect]
     Active Substance: ENZALUTAMIDE
     Indication: HORMONE-REFRACTORY PROSTATE CANCER
     Route: 048
     Dates: start: 20210702, end: 20210703

REACTIONS (4)
  - Retching [Unknown]
  - Product use complaint [Unknown]
  - Foreign body in throat [Unknown]
  - Choking [Unknown]

NARRATIVE: CASE EVENT DATE: 20210702
